FAERS Safety Report 8539458-5 (Version None)
Quarter: 2012Q3

REPORT INFORMATION
  Report Type: 
  Country: None (occurrence: None)
  Receive Date: 20120726
  Receipt Date: 20120719
  Transmission Date: 20120928
  Serious: Yes (Other)
  Sender: FDA-Public Use
  Company Number: US-TEVA-348191USA

PATIENT
  Sex: Female

DRUGS (1)
  1. COPAXONE [Suspect]
     Indication: MULTIPLE SCLEROSIS
     Route: 058
     Dates: start: 20120626

REACTIONS (9)
  - DYSPEPSIA [None]
  - PAIN IN EXTREMITY [None]
  - NECK PAIN [None]
  - HAEMATOCHEZIA [None]
  - PAIN [None]
  - WEIGHT DECREASED [None]
  - SPINAL PAIN [None]
  - LETHARGY [None]
  - ARTHRALGIA [None]
